FAERS Safety Report 19684673 (Version 5)
Quarter: 2022Q3

REPORT INFORMATION
  Report Type: Spontaneous
  Country: CH (occurrence: CH)
  Receive Date: 20210811
  Receipt Date: 20220919
  Transmission Date: 20221026
  Serious: Yes (Other)
  Sender: FDA-Public Use
  Company Number: None

PATIENT
  Sex: Female

DRUGS (27)
  1. TORSEMIDE [Suspect]
     Active Substance: TORSEMIDE
     Indication: Product used for unknown indication
     Dosage: 2.5 MILLIGRAM, QD (IN THE MORNING)
     Route: 065
     Dates: start: 2013
  2. TORSEMIDE [Suspect]
     Active Substance: TORSEMIDE
     Dosage: 2.5 MILLIGRAM, QD (IN THE MORNING)
     Route: 065
     Dates: start: 2016
  3. TORSEMIDE [Suspect]
     Active Substance: TORSEMIDE
     Dosage: 2.5 MILLIGRAM, QD (IN THE MORNING)
     Route: 065
     Dates: start: 202103, end: 20210823
  4. MEBEVERINE [Suspect]
     Active Substance: MEBEVERINE
     Indication: Product used for unknown indication
     Dosage: UNK UNK, PRN (AS NECESSARY) START DATE -MAR-2021
     Route: 065
     Dates: end: 20210604
  5. NEBIVOLOL [Suspect]
     Active Substance: NEBIVOLOL
     Indication: Product used for unknown indication
     Dosage: 7.5 MILLIGRAM, QD (5 MG IN MORNING AND 2.5 MG IN EVENING)
     Route: 065
     Dates: start: 2013
  6. NEBIVOLOL [Suspect]
     Active Substance: NEBIVOLOL
     Dosage: 7.5 MILLIGRAM, QD
     Route: 065
     Dates: start: 2016
  7. NEBIVOLOL [Suspect]
     Active Substance: NEBIVOLOL
     Dosage: 7.5 MILLIGRAM, QD
     Route: 065
     Dates: start: 202103
  8. ELIQUIS [Suspect]
     Active Substance: APIXABAN
     Indication: Product used for unknown indication
     Dosage: UNK
     Route: 065
     Dates: start: 202103
  9. ELIQUIS [Suspect]
     Active Substance: APIXABAN
     Dosage: UNK
     Route: 065
     Dates: end: 20210601
  10. ELIQUIS [Suspect]
     Active Substance: APIXABAN
     Dosage: UNK
     Route: 065
     Dates: start: 20210810, end: 20211111
  11. FOLIC ACID [Concomitant]
     Active Substance: FOLIC ACID
     Dosage: UNK
     Route: 065
  12. HYALURONATE SODIUM [Concomitant]
     Active Substance: HYALURONATE SODIUM
     Dosage: UNK
     Route: 065
  13. ATORVASTATIN [Concomitant]
     Active Substance: ATORVASTATIN
     Dosage: UNK
     Route: 065
  14. CALCIUM\CHOLECALCIFEROL [Concomitant]
     Active Substance: CALCIUM\CHOLECALCIFEROL
     Dosage: UNK
     Route: 065
  15. DAFALGAN [Concomitant]
     Active Substance: ACETAMINOPHEN
     Dosage: UNK
     Route: 065
  16. XARELTO [Concomitant]
     Active Substance: RIVAROXABAN
     Dosage: UNK
     Route: 065
  17. VITAMIN B12 [Concomitant]
     Active Substance: CYANOCOBALAMIN
     Dosage: UNK
     Route: 065
  18. MOVICOL [Concomitant]
     Active Substance: POLYETHYLENE GLYCOL 3350\POTASSIUM CHLORIDE\SODIUM BICARBONATE\SODIUM CHLORIDE
     Indication: Constipation
     Dosage: UNK UNK, PRN (AS NECESSARY)
     Route: 065
  19. TRAMADOL [Concomitant]
     Active Substance: TRAMADOL
     Indication: Pain
     Dosage: UNK UNK, PRN (AS NECESSARY)
     Route: 065
  20. REMERON [Concomitant]
     Active Substance: MIRTAZAPINE
     Dosage: UNK
     Route: 065
     Dates: start: 2013
  21. SINTROM [Concomitant]
     Active Substance: ACENOCOUMAROL
     Dosage: UNK
     Route: 065
     Dates: start: 2013
  22. SINTROM [Concomitant]
     Active Substance: ACENOCOUMAROL
     Dosage: UNK
     Route: 065
     Dates: start: 2016
  23. GLICLAZIDE [Concomitant]
     Active Substance: GLICLAZIDE
     Dosage: UNK
     Route: 065
     Dates: start: 2013
  24. GLICLAZIDE [Concomitant]
     Active Substance: GLICLAZIDE
     Dosage: UNK
     Route: 065
     Dates: start: 2016
  25. MEBEVERINE [Concomitant]
     Active Substance: MEBEVERINE
     Indication: Irritable bowel syndrome
     Dosage: 2.5 MILLIGRAM, QD
     Route: 065
     Dates: start: 2013
  26. MEBEVERINE [Concomitant]
     Active Substance: MEBEVERINE
     Dosage: 2.5 MILLIGRAM, QD
     Route: 065
     Dates: start: 2016
  27. MEBEVERINE [Concomitant]
     Active Substance: MEBEVERINE
     Dosage: 2.5 MILLIGRAM, QD
     Route: 065
     Dates: start: 202103, end: 2021

REACTIONS (1)
  - Gamma-glutamyltransferase increased [Recovering/Resolving]
